FAERS Safety Report 6239465-1 (Version None)
Quarter: 2009Q2

REPORT INFORMATION
  Report Type: 
  Country: None (occurrence: None)
  Receive Date: 20090618
  Receipt Date: 20090618
  Transmission Date: 20091009
  Serious: Yes (Other)
  Sender: FDA-Public Use
  Company Number: None

PATIENT
  Age: 55 Year
  Sex: Female
  Weight: 90.7194 kg

DRUGS (1)
  1. ZICAM NOT AVIL DEV BY GEL TECH AND DIST/GUM TECH [Suspect]
     Indication: NASOPHARYNGITIS
     Dosage: 1 PUMP 1 EA EVERY 2-4 HRS NASAL
     Route: 045
     Dates: start: 20000115, end: 20000119

REACTIONS (1)
  - ANOSMIA [None]
